FAERS Safety Report 21080919 (Version 2)
Quarter: 2022Q3

REPORT INFORMATION
  Report Type: Spontaneous
  Country: US (occurrence: US)
  Receive Date: 20220714
  Receipt Date: 20220728
  Transmission Date: 20221027
  Serious: Yes (Hospitalization)
  Sender: FDA-Public Use
  Company Number: US-GBT-013799

PATIENT
  Sex: Male

DRUGS (1)
  1. OXBRYTA [Suspect]
     Active Substance: VOXELOTOR
     Indication: Sickle cell anaemia
     Route: 048
     Dates: start: 2021

REACTIONS (9)
  - Acute chest syndrome [Recovered/Resolved]
  - Proteinuria [Unknown]
  - Sickle cell anaemia with crisis [Recovered/Resolved]
  - Thrombosis [Unknown]
  - Condition aggravated [Unknown]
  - Protein total decreased [Unknown]
  - Musculoskeletal chest pain [Recovered/Resolved]
  - Pain in extremity [Recovered/Resolved]
  - Chest pain [Recovered/Resolved]

NARRATIVE: CASE EVENT DATE: 20220601
